FAERS Safety Report 12705979 (Version 3)
Quarter: 2016Q4

REPORT INFORMATION
  Report Type: Spontaneous
  Country: FR (occurrence: FR)
  Receive Date: 20160901
  Receipt Date: 20161004
  Transmission Date: 20170207
  Serious: Yes (Death, Hospitalization)
  Sender: FDA-Public Use
  Company Number: FR-ACCORD-043641

PATIENT
  Age: 63 Year
  Sex: Female
  Weight: 60 kg

DRUGS (18)
  1. PREDNISONE. [Concomitant]
     Active Substance: PREDNISONE
     Indication: PREMEDICATION
     Dosage: IN THE PREVIOUS EVENING,IN THE EVENING AND IN THE NEXT MORNING AFTER THE ADMINISTRATION OF DOCETAXEL
     Route: 048
  2. METHYLPREDNISOLONE. [Concomitant]
     Active Substance: METHYLPREDNISOLONE
     Dosage: 120 MG BY SLOW INTRAVENOUS ROUTE IN 20 ML OF SODIUM CHLORIDE AT 0.9 %.
     Route: 042
  3. SITAGLIPTIN/SITAGLIPTIN PHOSPHATE [Concomitant]
     Dosage: ONE TABLET IN THE MORNING AND IN THE EVENING
  4. ATORVASTATIN [Concomitant]
     Active Substance: ATORVASTATIN
     Dosage: IN THE EVENING
  5. OMEPRAZOLE. [Concomitant]
     Active Substance: OMEPRAZOLE
     Dosage: IN THE EVENING
  6. ENDOXAN [Suspect]
     Active Substance: CYCLOPHOSPHAMIDE
     Indication: BREAST CANCER
     Dosage: 940 MG (600 MG/M2)
     Dates: start: 20160321
  7. IRBESARTAN. [Concomitant]
     Active Substance: IRBESARTAN
     Dosage: IN THE MORNING
  8. PARACETAMOL [Concomitant]
     Active Substance: ACETAMINOPHEN
     Dosage: 1 GM 4 TIMES DAILY
  9. METOCLOPRAMIDE. [Concomitant]
     Active Substance: METOCLOPRAMIDE
     Indication: PREMEDICATION
     Dosage: 10 MG BEFORE A MEAL IF ONLY THERE WAS NAUSEA
  10. MONTELUKAST [Concomitant]
     Active Substance: MONTELUKAST SODIUM
     Dosage: IN THE EVENING
  11. ONDANSETRON [Concomitant]
     Active Substance: ONDANSETRON
     Indication: PREMEDICATION
  12. LEVOTHYROX [Concomitant]
     Active Substance: LEVOTHYROXINE
     Dosage: IN THE MORNING
  13. METFORMIN [Concomitant]
     Active Substance: METFORMIN HYDROCHLORIDE
     Dosage: IN THE MORNING AND IN THE EVENING
  14. METHOTREXATE. [Concomitant]
     Active Substance: METHOTREXATE
  15. GRANISETRON [Concomitant]
     Active Substance: GRANISETRON
     Indication: PREMEDICATION
     Dosage: ONE IN THE MORNING AND IN THE EVENING AT THE DAY OF DOCETAXEL ADMINISTRATION
  16. ACCORD^S DOCETAXEL [Suspect]
     Active Substance: DOCETAXEL
     Indication: BREAST CANCER
     Dosage: 120 MG (75MG/M2)?PREPARATION NUMBER: 550971 AND DOSE: 170 MG??STRENGTH: DOCETAXEL ACCORD 160 MG/8
     Route: 042
     Dates: start: 20160321
  17. SALBUTAMOL [Concomitant]
     Active Substance: ALBUTEROL
     Dosage: 100 ?G VIA 2 PUFFS IF NEEDED
  18. FOLIC ACID. [Concomitant]
     Active Substance: FOLIC ACID

REACTIONS (8)
  - Cardiac arrest [Fatal]
  - Intestinal obstruction [Fatal]
  - Haematemesis [Fatal]
  - Agranulocytosis [Fatal]
  - Acute kidney injury [Fatal]
  - Septic shock [Fatal]
  - Bone marrow failure [Fatal]
  - Ventricular fibrillation [Fatal]

NARRATIVE: CASE EVENT DATE: 20160401
